FAERS Safety Report 19043652 (Version 1)
Quarter: 2021Q1

REPORT INFORMATION
  Report Type: Spontaneous
  Country: FR (occurrence: FR)
  Receive Date: 20210323
  Receipt Date: 20210323
  Transmission Date: 20210420
  Serious: Yes (Life-Threatening, Other)
  Sender: FDA-Public Use
  Company Number: FR-PFIZER INC-2021282534

PATIENT
  Age: 48 Year
  Sex: Female
  Weight: 85 kg

DRUGS (8)
  1. ACUPAN [Suspect]
     Active Substance: NEFOPAM HYDROCHLORIDE
     Dosage: UNK
     Route: 048
     Dates: start: 20210214
  2. ANTALNOX [Suspect]
     Active Substance: NAPROXEN SODIUM
     Dosage: 25.85 G
     Route: 048
     Dates: start: 20210214
  3. PARACETAMOL [Suspect]
     Active Substance: ACETAMINOPHEN
     Dosage: 48 G
     Route: 048
     Dates: start: 20210214
  4. CODEINE [Suspect]
     Active Substance: CODEINE
     Dosage: 960 MG
     Route: 048
     Dates: start: 20210214
  5. ALPRAZOLAM. [Suspect]
     Active Substance: ALPRAZOLAM
     Dosage: 7.5 G
     Route: 048
     Dates: start: 20210214
  6. ACTISKENAN [Suspect]
     Active Substance: MORPHINE SULFATE
     Dosage: 140 MG
     Route: 048
     Dates: start: 20210214
  7. KETOPROFEN. [Suspect]
     Active Substance: KETOPROFEN
     Dosage: 3 G
     Route: 048
     Dates: start: 20210214
  8. IBUPROFENE [Suspect]
     Active Substance: IBUPROFEN
     Dosage: 8 G
     Route: 048
     Dates: start: 20210214

REACTIONS (3)
  - Coma [Recovered/Resolved]
  - Toxicity to various agents [Unknown]
  - Metabolic acidosis [Recovered/Resolved]

NARRATIVE: CASE EVENT DATE: 20210214
